FAERS Safety Report 17656644 (Version 1)
Quarter: 2020Q2

REPORT INFORMATION
  Report Type: Spontaneous
  Country: DE (occurrence: DE)
  Receive Date: 20200410
  Receipt Date: 20200410
  Transmission Date: 20200713
  Serious: Yes (Other)
  Sender: FDA-Public Use
  Company Number: DE-ELI_LILLY_AND_COMPANY-DE202004002658

PATIENT
  Age: 80 Year
  Sex: Male

DRUGS (2)
  1. EFIENT 5MG [Suspect]
     Active Substance: PRASUGREL HYDROCHLORIDE
     Indication: STENT PLACEMENT
     Dosage: UNK UNK, UNKNOWN
     Route: 065
     Dates: start: 201912
  2. ASPIRIN. [Concomitant]
     Active Substance: ASPIRIN
     Indication: STENT PLACEMENT
     Dosage: UNK
     Dates: start: 201912

REACTIONS (1)
  - Prostate cancer [Not Recovered/Not Resolved]
